FAERS Safety Report 7265009-1 (Version None)
Quarter: 2011Q1

REPORT INFORMATION
  Report Type: 
  Country: None (occurrence: None)
  Receive Date: 20110131
  Receipt Date: 20110125
  Transmission Date: 20110831
  Serious: Yes (Death)
  Sender: FDA-Public Use
  Company Number: GB-BAYER-2011-001985

PATIENT
  Age: 25 Year
  Sex: Male

DRUGS (16)
  1. DARUNAVIR ETHANOLATE [Suspect]
     Indication: HIV INFECTION
  2. EFAVIRENZ [Concomitant]
  3. PROTHIONAMIDE [Concomitant]
     Indication: TUBERCULOSIS
  4. AMIKACIN [Concomitant]
     Indication: TUBERCULOSIS
     Route: 042
  5. VALGANCICLOVIR HCL [Concomitant]
  6. CLOFAZIMINE [Concomitant]
  7. ETHAMBUTOL HYDROCHLORIDE [Concomitant]
     Indication: TUBERCULOSIS
  8. ONDANSETRON [Suspect]
  9. PYRAZINAMIDE [Concomitant]
     Indication: TUBERCULOSIS
  10. FLUCONAZOLE [Suspect]
     Indication: ORAL CANDIDIASIS
  11. RITONAVIR [Suspect]
     Indication: HIV INFECTION
  12. HEPARIN [Concomitant]
  13. CYCLOSERINE [Concomitant]
     Indication: TUBERCULOSIS
  14. LINEZOLID [Concomitant]
     Indication: TUBERCULOSIS
  15. TRUVADA [Concomitant]
  16. MOXIFLOXACIN IV [Suspect]
     Indication: TUBERCULOSIS

REACTIONS (1)
  - ARRHYTHMIA [None]
